FAERS Safety Report 22884927 (Version 12)
Quarter: 2024Q1

REPORT INFORMATION
  Report Type: Spontaneous
  Country: CA (occurrence: CA)
  Receive Date: 20230830
  Receipt Date: 20240329
  Transmission Date: 20240409
  Serious: Yes (Other)
  Sender: FDA-Public Use
  Company Number: CA-PFIZER INC-202300182684

PATIENT
  Age: 18 Year
  Sex: Male
  Weight: 50 kg

DRUGS (9)
  1. XELJANZ [Suspect]
     Active Substance: TOFACITINIB CITRATE
     Indication: Colitis ulcerative
     Dosage: 10 MG, 2X/DAY, STARTED IN HOSPITAL
     Route: 048
     Dates: start: 20230503, end: 202308
  2. XELJANZ [Suspect]
     Active Substance: TOFACITINIB CITRATE
     Dosage: 10 MG, 3X/DAY
     Route: 048
     Dates: start: 202305, end: 202305
  3. XELJANZ [Suspect]
     Active Substance: TOFACITINIB CITRATE
     Dosage: 10 MG, 2X/DAY
     Route: 048
     Dates: start: 20230509
  4. XELJANZ [Suspect]
     Active Substance: TOFACITINIB CITRATE
     Dosage: 5 MG, 2X/DAY
     Route: 048
     Dates: start: 202308, end: 202311
  5. XELJANZ [Suspect]
     Active Substance: TOFACITINIB CITRATE
     Dosage: 5 MG, 2X/DAY
     Route: 048
     Dates: start: 20230815
  6. XELJANZ [Suspect]
     Active Substance: TOFACITINIB CITRATE
     Dosage: 10 MG, 2X/DAY
     Route: 048
     Dates: start: 202311, end: 2024
  7. METHOTREXATE [Concomitant]
     Active Substance: METHOTREXATE
     Dosage: 12500 UG, UNK FREQ
     Dates: start: 202303
  8. PREDNISONE [Concomitant]
     Active Substance: PREDNISONE
     Indication: Colitis ulcerative
     Dosage: 10 MG, 1X/DAY
  9. MESALAMINE [Concomitant]
     Active Substance: MESALAMINE
     Indication: Colitis ulcerative
     Dosage: 1 G, 1X/DAY

REACTIONS (18)
  - Colitis ulcerative [Not Recovered/Not Resolved]
  - Haemorrhage [Recovered/Resolved]
  - Drug ineffective [Unknown]
  - Off label use [Unknown]
  - Intercepted medication error [Unknown]
  - Haemoglobin decreased [Unknown]
  - Haematocrit decreased [Unknown]
  - Red blood cell count decreased [Unknown]
  - Mean cell haemoglobin decreased [Unknown]
  - Platelet count increased [Unknown]
  - Red cell distribution width increased [Unknown]
  - Lymphocyte count decreased [Unknown]
  - Stress [Not Recovered/Not Resolved]
  - Pouchitis [Unknown]
  - Post-traumatic stress disorder [Unknown]
  - Psychological trauma [Unknown]
  - Weight increased [Unknown]
  - Fatigue [Unknown]

NARRATIVE: CASE EVENT DATE: 20230101
